FAERS Safety Report 18329223 (Version 1)
Quarter: 2020Q3

REPORT INFORMATION
  Report Type: Spontaneous
  Country: DE (occurrence: DE)
  Receive Date: 20200930
  Receipt Date: 20200930
  Transmission Date: 20201103
  Serious: Yes (Hospitalization)
  Sender: FDA-Public Use
  Company Number: DE-ELI_LILLY_AND_COMPANY-DE202009008687

PATIENT
  Age: 43 Year
  Sex: Male

DRUGS (4)
  1. ZYPADHERA [Suspect]
     Active Substance: OLANZAPINE PAMOATE
     Indication: MANIA
     Dosage: 405 MG, OTHER EVERY 3 WEEKS
     Route: 030
     Dates: start: 202002
  2. ZYPADHERA [Suspect]
     Active Substance: OLANZAPINE PAMOATE
     Indication: MANIA
     Dosage: 405 MG, OTHER EVERY 3 WEEKS
     Route: 030
     Dates: start: 202002
  3. ZYPADHERA [Suspect]
     Active Substance: OLANZAPINE PAMOATE
     Indication: MANIA
     Dosage: 405 MG, OTHER EVERY 3 WEEKS
     Route: 030
     Dates: start: 202002
  4. VENLAFAXINE [Concomitant]
     Active Substance: VENLAFAXINE HYDROCHLORIDE
     Indication: PRODUCT USED FOR UNKNOWN INDICATION
     Dosage: 75 MG, EACH MORNING

REACTIONS (7)
  - Psychomotor hyperactivity [Recovering/Resolving]
  - Hypoaesthesia [Recovering/Resolving]
  - Dizziness [Recovering/Resolving]
  - Tremor [Recovering/Resolving]
  - Post-injection delirium sedation syndrome [Recovering/Resolving]
  - Tachycardia [Recovering/Resolving]
  - Dysarthria [Recovering/Resolving]

NARRATIVE: CASE EVENT DATE: 20200909
